FAERS Safety Report 7699398-0 (Version None)
Quarter: 2011Q3

REPORT INFORMATION
  Report Type: 
  Country: None (occurrence: None)
  Receive Date: 20110819
  Receipt Date: 20110810
  Transmission Date: 20111222
  Serious: Yes (Hospitalization, Disabling)
  Sender: FDA-Public Use
  Company Number: US-ASTRAZENECA-2010SE42802

PATIENT
  Age: 70 Year
  Sex: Female

DRUGS (1)
  1. ACCOLATE [Suspect]
     Route: 048

REACTIONS (2)
  - URINARY TRACT INFECTION [None]
  - JOINT INJURY [None]
